FAERS Safety Report 6697672-8 (Version None)
Quarter: 2010Q2

REPORT INFORMATION
  Report Type: 
  Country: None (occurrence: None)
  Receive Date: 20100426
  Receipt Date: 20100419
  Transmission Date: 20101027
  Serious: Yes (Life-Threatening, Hospitalization)
  Sender: FDA-Public Use
  Company Number: JP-MERCK-1004USA03752

PATIENT
  Age: 70 Year
  Sex: Male

DRUGS (14)
  1. EMEND [Suspect]
     Indication: PROPHYLAXIS OF NAUSEA AND VOMITING
     Route: 048
     Dates: start: 20100331, end: 20100331
  2. EMEND [Suspect]
     Route: 048
     Dates: start: 20100401, end: 20100402
  3. TOUGHMAC E [Concomitant]
     Route: 065
  4. FLUOROURACIL [Concomitant]
     Route: 065
     Dates: start: 20100331
  5. PLATOSIN [Concomitant]
     Route: 065
     Dates: start: 20100331
  6. DOXAZOSIN MESYLATE [Concomitant]
     Route: 065
  7. NATRIX [Concomitant]
     Route: 065
  8. MICARDIS [Concomitant]
     Route: 065
  9. RIZE [Concomitant]
     Route: 065
  10. HERLAT [Concomitant]
     Route: 065
  11. MARZULENE-S [Concomitant]
     Route: 065
  12. MIYA BM [Concomitant]
     Route: 065
  13. PEPCID RPD [Concomitant]
     Route: 065
  14. TAGAMET [Concomitant]
     Route: 065

REACTIONS (3)
  - BLOOD CREATININE INCREASED [None]
  - BLOOD UREA INCREASED [None]
  - PLEURAL EFFUSION [None]
